FAERS Safety Report 20375816 (Version 4)
Quarter: 2025Q2

REPORT INFORMATION
  Report Type: Spontaneous
  Country: GB (occurrence: GB)
  Receive Date: 20220125
  Receipt Date: 20250527
  Transmission Date: 20250716
  Serious: Yes (Hospitalization, Disabling, Other)
  Sender: GALPHARM INTERNATIONAL
  Company Number: None

PATIENT

DRUGS (38)
  1. ACETAMINOPHEN [Suspect]
     Active Substance: ACETAMINOPHEN
     Indication: Pain
     Dosage: QID (TAKE 1-2 TABLETS TO BE TAKEN FOUR TIMES DAILY ,200 TABLET)
     Route: 065
     Dates: start: 20210927, end: 20211122
  2. ACETAMINOPHEN [Suspect]
     Active Substance: ACETAMINOPHEN
     Indication: Pyrexia
     Route: 065
  3. ACETAMINOPHEN [Suspect]
     Active Substance: ACETAMINOPHEN
     Indication: Osteoarthritis
     Route: 065
  4. ACETAMINOPHEN [Suspect]
     Active Substance: ACETAMINOPHEN
     Indication: Blood cholesterol
  5. CALCIUM CARBONATE [Suspect]
     Active Substance: CALCIUM CARBONATE
     Indication: Product used for unknown indication
     Route: 065
  6. CALCIUM CARBONATE [Suspect]
     Active Substance: CALCIUM CARBONATE
     Indication: Product used for unknown indication
     Dosage: 1 TO BE TAKEN TWICE DAILY, 112 TABLET
     Route: 048
     Dates: start: 20211122, end: 20211122
  7. ASPIRIN [Suspect]
     Active Substance: ASPIRIN
     Indication: Product used for unknown indication
     Dosage: TAKE ONE DAILY, 56 TABLETS
     Route: 048
     Dates: start: 20211118, end: 20211202
  8. ATORVASTATIN [Suspect]
     Active Substance: ATORVASTATIN
     Indication: Product used for unknown indication
     Dosage: 1 TO BE TAKEN EACH NIGHT, 56 TABLET
     Route: 065
     Dates: start: 20211118, end: 20211202
  9. ATORVASTATIN [Suspect]
     Active Substance: ATORVASTATIN
     Route: 065
  10. CLOPIDOGREL [Suspect]
     Active Substance: CLOPIDOGREL BISULFATE
     Indication: Product used for unknown indication
     Dosage: TAKE ONE DAILY, 56 TABLET
     Route: 048
     Dates: start: 20211118, end: 20211202
  11. CLOPIDOGREL [Suspect]
     Active Substance: CLOPIDOGREL BISULFATE
     Route: 065
  12. IBUPROFEN [Suspect]
     Active Substance: IBUPROFEN
     Indication: Arthralgia
     Dosage: 100 GRAM, TID (3 TIMES PER DAY)
     Route: 065
     Dates: start: 20200721, end: 20210913
  13. IBUPROFEN [Suspect]
     Active Substance: IBUPROFEN
     Indication: Product used for unknown indication
     Route: 065
  14. LANSOPRAZOLE [Suspect]
     Active Substance: LANSOPRAZOLE
     Indication: Product used for unknown indication
     Dosage: TAKE ONE ONCE DAILY WHILST TAKING CITALOPRAM, 28 GASTRO-RESISTANT CAPSULES
     Route: 048
     Dates: start: 20211122, end: 20211122
  15. LANSOPRAZOLE [Suspect]
     Active Substance: LANSOPRAZOLE
     Route: 065
  16. RAMIPRIL [Suspect]
     Active Substance: RAMIPRIL
     Indication: Hypertension
     Dosage: TAKE ONE DAILY. THE DOSE OF THIS MEDICATION MAY NEED TO BE ALTERED IF YOU HAVE A DIARRHOEA/VOMITING
     Route: 048
     Dates: start: 20211122, end: 20211122
  17. RAMIPRIL [Suspect]
     Active Substance: RAMIPRIL
     Indication: Product used for unknown indication
     Route: 065
  18. ALENDRONATE SODIUM [Suspect]
     Active Substance: ALENDRONATE SODIUM
     Indication: Coeliac disease
     Route: 065
  19. ALENDRONATE SODIUM [Suspect]
     Active Substance: ALENDRONATE SODIUM
     Indication: Osteoporosis
     Dosage: QW
     Route: 048
     Dates: start: 20200331, end: 20211004
  20. ALENDRONATE SODIUM [Suspect]
     Active Substance: ALENDRONATE SODIUM
     Indication: Blood cholesterol
     Route: 048
  21. MIRTAZAPINE [Suspect]
     Active Substance: MIRTAZAPINE
     Indication: Osteoarthritis
     Dosage: 1 DF, QD
     Route: 048
     Dates: start: 20211118, end: 20211202
  22. MIRTAZAPINE [Suspect]
     Active Substance: MIRTAZAPINE
     Indication: Pyrexia
     Dosage: 1 DOSAGE FORM, EVERY NIGHT (1 NOCTE)
     Route: 048
     Dates: start: 20201129
  23. MIRTAZAPINE [Suspect]
     Active Substance: MIRTAZAPINE
     Indication: Osteoporosis
     Route: 048
     Dates: start: 20200331, end: 20211004
  24. MIRTAZAPINE [Suspect]
     Active Substance: MIRTAZAPINE
     Indication: Coeliac disease
     Route: 065
     Dates: start: 20210927, end: 20211122
  25. MIRTAZAPINE [Suspect]
     Active Substance: MIRTAZAPINE
     Indication: Arthralgia
     Dosage: 15 MG, 1 DOSAGE FORM, EVERY NIGHT (1 NOCTE)
     Route: 048
     Dates: start: 20201129
  26. MIRTAZAPINE [Suspect]
     Active Substance: MIRTAZAPINE
     Indication: Pain
     Route: 065
  27. MIRTAZAPINE [Suspect]
     Active Substance: MIRTAZAPINE
     Indication: Hypertension
     Dosage: 100 G, TID
     Route: 065
     Dates: start: 20200721, end: 20210913
  28. MIRTAZAPINE [Suspect]
     Active Substance: MIRTAZAPINE
     Dosage: 1 DF, QD
     Route: 048
     Dates: start: 20211122, end: 20211122
  29. MIRTAZAPINE [Suspect]
     Active Substance: MIRTAZAPINE
  30. CALCIUM CARBONATE\CHOLECALCIFEROL [Concomitant]
     Active Substance: CALCIUM CARBONATE\CHOLECALCIFEROL
     Indication: Blood calcium
     Route: 048
  31. CETIRIZINE [Concomitant]
     Active Substance: CETIRIZINE HYDROCHLORIDE
     Indication: Seasonal allergy
     Dosage: 1 DOSAGE FORM, QD (TAKE ONE DAILY)
     Route: 048
     Dates: start: 20180226, end: 20210913
  32. CETIRIZINE [Concomitant]
     Active Substance: CETIRIZINE HYDROCHLORIDE
     Indication: Seasonal allergy
     Dosage: 1 DF, QD
     Route: 048
     Dates: start: 20180226, end: 20210913
  33. CITALOPRAM [Concomitant]
     Active Substance: CITALOPRAM
     Indication: Mood altered
     Route: 048
  34. CITALOPRAM [Concomitant]
     Active Substance: CITALOPRAM
     Route: 048
  35. CITALOPRAM [Concomitant]
     Active Substance: CITALOPRAM
     Route: 048
  36. LANTUS [Concomitant]
     Active Substance: INSULIN GLARGINE
     Indication: Type 2 diabetes mellitus
     Route: 048
     Dates: start: 20180226, end: 20210802
  37. SIMVASTATIN [Concomitant]
     Active Substance: SIMVASTATIN
     Indication: Blood cholesterol
     Route: 048
  38. SIMVASTATIN [Concomitant]
     Active Substance: SIMVASTATIN
     Indication: Blood cholesterol abnormal
     Route: 048

REACTIONS (31)
  - General physical health deterioration [Not Recovered/Not Resolved]
  - Blood calcium decreased [Not Recovered/Not Resolved]
  - Malaise [Not Recovered/Not Resolved]
  - Off label use [Unknown]
  - Mobility decreased [Not Recovered/Not Resolved]
  - Loose tooth [Not Recovered/Not Resolved]
  - Arthritis [Not Recovered/Not Resolved]
  - Constipation [Not Recovered/Not Resolved]
  - Labyrinthitis [Not Recovered/Not Resolved]
  - Nausea [Unknown]
  - Noninfective gingivitis [Unknown]
  - Tooth fracture [Not Recovered/Not Resolved]
  - Chronic fatigue syndrome [Unknown]
  - Asthenia [Unknown]
  - Product use in unapproved indication [Unknown]
  - Balance disorder [Unknown]
  - Fall [Unknown]
  - Coordination abnormal [Unknown]
  - Fatigue [Unknown]
  - Muscle twitching [Unknown]
  - Angiopathy [Unknown]
  - Arthralgia [Unknown]
  - Osteitis [Unknown]
  - Parkinson^s disease [Unknown]
  - Coeliac disease [Unknown]
  - Agitation [Unknown]
  - Abdominal discomfort [Unknown]
  - Flank pain [Unknown]
  - Oedema peripheral [Unknown]
  - Diarrhoea [Unknown]
  - Dyspepsia [Unknown]

NARRATIVE: CASE EVENT DATE: 20210101
